FAERS Safety Report 15250915 (Version 1)
Quarter: 2018Q3

REPORT INFORMATION
  Report Type: Spontaneous
  Country: US (occurrence: US)
  Receive Date: 20180807
  Receipt Date: 20180807
  Transmission Date: 20181010
  Serious: No
  Sender: FDA-Public Use
  Company Number: US-PERRIGO-18US005448

PATIENT
  Age: 27 Year
  Sex: Female
  Weight: 39.46 kg

DRUGS (1)
  1. IBUPROFEN. [Suspect]
     Active Substance: IBUPROFEN
     Indication: ORAL DISCOMFORT
     Dosage: 200 MG EVERY 4 TO 6 HOURS DAILY
     Route: 048
     Dates: start: 201804, end: 20180514

REACTIONS (1)
  - Incorrect drug administration duration [Recovered/Resolved]

NARRATIVE: CASE EVENT DATE: 201804
